FAERS Safety Report 8499305 (Version 10)
Quarter: 2014Q4

REPORT INFORMATION
  Report Type: Spontaneous
  Country: FR (occurrence: FR)
  Receive Date: 20120409
  Receipt Date: 20141211
  Transmission Date: 20150529
  Serious: Yes (Life-Threatening, Hospitalization, Other)
  Sender: FDA-Public Use
  Company Number: FR-PFIZER INC-2012075353

PATIENT
  Age: 62 Year
  Sex: Male
  Weight: 100 kg

DRUGS (9)
  1. TAHOR [Suspect]
     Active Substance: ATORVASTATIN CALCIUM
     Dosage: 40 MG, 1X/DAY
     Route: 048
     Dates: start: 20110515, end: 20110919
  2. TENORMIN [Suspect]
     Active Substance: ATENOLOL
     Dosage: 50 MG, 1X/DAY
     Route: 048
     Dates: start: 20110515
  3. COVERSYL [Suspect]
     Active Substance: PERINDOPRIL
     Dosage: 4 MG, 1X/DAY
     Route: 048
     Dates: start: 20110515, end: 20110918
  4. LANZOPRAZOLE [Concomitant]
     Active Substance: LANSOPRAZOLE
     Dosage: UNK
     Dates: start: 201109
  5. INEXIUM [Concomitant]
     Active Substance: ESOMEPRAZOLE
     Dosage: 40 MG, UNK
     Dates: start: 20110515, end: 20110601
  6. METEOSPASMYL [Concomitant]
     Active Substance: ALVERINE CITRATE\DIMETHICONE
     Dosage: UNK
     Dates: start: 201109
  7. PLAVIX [Suspect]
     Active Substance: CLOPIDOGREL BISULFATE
     Dosage: 75 MG, 1X/DAY
     Route: 048
     Dates: start: 20110515, end: 20111004
  8. KARDEGIC [Concomitant]
     Active Substance: ASPIRIN LYSINE
     Dosage: 75 MG, DAILY
     Dates: start: 20110515
  9. OROPERYDIS [Concomitant]
     Dosage: UNK
     Dates: start: 201109

REACTIONS (5)
  - Large intestine perforation [Unknown]
  - Drug-induced liver injury [Recovered/Resolved with Sequelae]
  - Hepatic encephalopathy [Recovered/Resolved with Sequelae]
  - Hepatitis fulminant [Recovered/Resolved with Sequelae]
  - Hepatic failure [Recovered/Resolved with Sequelae]

NARRATIVE: CASE EVENT DATE: 201109
